FAERS Safety Report 21843349 (Version 1)
Quarter: 2023Q1

REPORT INFORMATION
  Report Type: Spontaneous
  Country: US (occurrence: US)
  Receive Date: 20230110
  Receipt Date: 20230110
  Transmission Date: 20230418
  Serious: No
  Sender: FDA-Public Use
  Company Number: US-PARI RESPIRATORY EQUIPMENT, INC.-2022PAR00009

PATIENT
  Weight: 70.295 kg

DRUGS (4)
  1. KITABIS PAK [Suspect]
     Active Substance: TOBRAMYCIN
     Indication: Bronchiectasis
     Dosage: 1 AMPULE (300 MG) VIA NEBULIZER, EVERY 12 HOURS FOR 28 DAYS ON + 28 DAYS OFF
     Dates: start: 2022, end: 2022
  2. KITABIS PAK [Suspect]
     Active Substance: TOBRAMYCIN
     Dosage: 1 AMPULE (300 MG) VIA NEBULIZER, EVERY 12 HOURS FOR 28 DAYS ON + 28 DAYS OFF
     Dates: start: 202202
  3. UNSPECIFIED INGREDIENT [Concomitant]
     Active Substance: UNSPECIFIED INGREDIENT
  4. UNSPECIFIED INGREDIENT [Concomitant]
     Active Substance: UNSPECIFIED INGREDIENT

REACTIONS (4)
  - Dysphonia [Recovered/Resolved]
  - Tinnitus [Recovered/Resolved]
  - Aphonia [Recovered/Resolved]
  - Off label use [Not Recovered/Not Resolved]

NARRATIVE: CASE EVENT DATE: 20220101
